FAERS Safety Report 11225672 (Version 1)
Quarter: 2015Q2

REPORT INFORMATION
  Report Type: Spontaneous
  Country: US (occurrence: US)
  Receive Date: 20150629
  Receipt Date: 20150629
  Transmission Date: 20150821
  Serious: No
  Sender: FDA-Public Use
  Company Number: US-BAUSCH-BL-2015-010527

PATIENT
  Age: 20 Year
  Sex: Female
  Weight: 56.75 kg

DRUGS (1)
  1. SOLODYN [Suspect]
     Active Substance: MINOCYCLINE HYDROCHLORIDE
     Indication: ACNE
     Route: 048
     Dates: start: 20141202, end: 20150319

REACTIONS (2)
  - Pruritus [Not Recovered/Not Resolved]
  - Hepatic enzyme increased [Recovering/Resolving]

NARRATIVE: CASE EVENT DATE: 20150303
